FAERS Safety Report 10710629 (Version 1)
Quarter: 2015Q1

REPORT INFORMATION
  Report Type: Spontaneous
  Country: US (occurrence: None)
  Receive Date: 20150112
  Receipt Date: 20150112
  Transmission Date: 20150721
  Serious: Yes (Death, Other)
  Sender: FDA-Public Use
  Company Number: US-ALKEM-000808

PATIENT
  Age: 40 Year
  Sex: Male

DRUGS (2)
  1. TACROLIMUS. [Suspect]
     Active Substance: TACROLIMUS
     Indication: PROPHYLAXIS AGAINST GRAFT VERSUS HOST DISEASE
  2. MYCOPHENOLATE MOFETIL(MYCOPHENOLATE MOFETIL) [Suspect]
     Active Substance: MYCOPHENOLATE MOFETIL
     Indication: PROPHYLAXIS AGAINST GRAFT VERSUS HOST DISEASE

REACTIONS (14)
  - Hepatitis cholestatic [None]
  - Hepatitis C [None]
  - Acute graft versus host disease [None]
  - Graft versus host disease in gastrointestinal tract [None]
  - Vomiting [None]
  - Hypoxia [None]
  - Graft versus host disease in skin [None]
  - Fungal infection [None]
  - Ascites [None]
  - Acute graft versus host disease in liver [None]
  - Confusional state [None]
  - Pneumonia [None]
  - Nausea [None]
  - Off label use [None]
